FAERS Safety Report 4403913-X (Version None)
Quarter: 2004Q3

REPORT INFORMATION
  Report Type: 
  Country: None (occurrence: None)
  Receive Date: 20040719
  Receipt Date: 20040709
  Transmission Date: 20050211
  Serious: Yes (Hospitalization)
  Sender: FDA-Public Use
  Company Number: JP-JNJFOC-20040607188

PATIENT
  Age: 55 Year
  Sex: Female

DRUGS (4)
  1. RISPERDAL [Suspect]
     Indication: MENTAL DISORDER DUE TO A GENERAL MEDICAL CONDITION
     Dosage: 4 MG, 1 IN 1 DAY, ORAL
     Route: 048
     Dates: start: 20040526, end: 20040619
  2. PROMETHAZINE HYDROCHLORIDE (PROMETHAZINE HYDROCLORIDE) [Concomitant]
  3. TRIAZAOLAM (TRIAZOLAM) [Concomitant]
  4. LORMETAZEPAM (LORMETAZEPAM) [Concomitant]

REACTIONS (1)
  - THROMBOCYTOPENIA [None]
